FAERS Safety Report 13004704 (Version 6)
Quarter: 2017Q4

REPORT INFORMATION
  Report Type: Spontaneous
  Country: GB (occurrence: GB)
  Receive Date: 20161207
  Receipt Date: 20171103
  Transmission Date: 20180320
  Serious: Yes (Hospitalization, Other)
  Sender: FDA-Public Use
  Company Number: XA-009507513-1612XAA002537

PATIENT
  Age: 79 Year
  Sex: Female

DRUGS (58)
  1. VELCADE [Suspect]
     Active Substance: BORTEZOMIB
     Dosage: C1D29 (2 .25 MG)
     Route: 058
     Dates: start: 20151229
  2. VELCADE [Suspect]
     Active Substance: BORTEZOMIB
     Dosage: UNK
  3. AMLODIPINE [Concomitant]
     Active Substance: AMLODIPINE BESYLATE
     Indication: HYPERTENSION
     Dosage: ( 5 MG, 1 IN 1 D)
     Route: 048
  4. DALTEPARIN SODIUM [Concomitant]
     Active Substance: DALTEPARIN SODIUM
     Indication: THROMBOSIS PROPHYLAXIS
     Dosage: 5000 IU, 1 D
     Route: 058
     Dates: start: 20160308, end: 20160315
  5. ACETAMINOPHEN. [Concomitant]
     Active Substance: ACETAMINOPHEN
     Indication: PNEUMONIA
     Dosage: 1 GM, 1 AS REQUIRED
     Route: 048
     Dates: start: 20160101
  6. ACETAMINOPHEN. [Concomitant]
     Active Substance: ACETAMINOPHEN
     Dosage: 1 GM, 4 IN 1 D
     Route: 048
     Dates: start: 2005, end: 20160101
  7. SODIUM CHLORIDE. [Concomitant]
     Active Substance: SODIUM CHLORIDE
     Indication: SEPSIS
     Dosage: UNKNOWN (1000 ML)
     Route: 042
     Dates: start: 20160308, end: 20160308
  8. VELCADE [Suspect]
     Active Substance: BORTEZOMIB
     Dosage: C1D4 (2. 25 MG)
     Route: 058
     Dates: start: 20151204
  9. VELCADE [Suspect]
     Active Substance: BORTEZOMIB
     Dosage: C2D29 (2 .25 MG)
     Route: 058
     Dates: start: 20160209
  10. VELCADE [Suspect]
     Active Substance: BORTEZOMIB
     Dosage: C2D8 (2 .25 MG)
     Route: 058
     Dates: start: 20160119
  11. VELCADE [Suspect]
     Active Substance: BORTEZOMIB
     Dosage: DAYS 1,4,8,11,22,25,29, 32 (2.25MG)
     Route: 058
     Dates: start: 20151201, end: 20160119
  12. BACTRIM [Suspect]
     Active Substance: SULFAMETHOXAZOLE\TRIMETHOPRIM
     Indication: PRODUCT USED FOR UNKNOWN INDICATION
     Dosage: UNKNOWN
     Route: 065
  13. PREDNISONE. [Concomitant]
     Active Substance: PREDNISONE
     Indication: PLASMA CELL MYELOMA
     Dosage: UNKNOWN (105 MG)
     Route: 048
     Dates: start: 20160114, end: 20160116
  14. PARAMOL (ACETAMINOPHEN (+) DIHYDROCODEINE BITARTRATE) [Concomitant]
     Indication: ARTHRALGIA
     Dosage: 30-60MG (UNKNOWN, 4 IN 1 D)
     Route: 048
     Dates: start: 20150225
  15. DOXAZOSIN [Concomitant]
     Active Substance: DOXAZOSIN\DOXAZOSIN MESYLATE
     Dosage: 3 GRAIN (1 G, 3 IN 1 D)
     Route: 048
  16. SEPTRIN [Concomitant]
     Active Substance: SULFAMETHOXAZOLE\TRIMETHOPRIM
     Dosage: 490 MG, 3 IN 1 D
     Route: 048
  17. VELCADE [Suspect]
     Active Substance: BORTEZOMIB
     Dosage: C1D8 (2 .25 MG)
     Route: 058
     Dates: start: 20151208
  18. VELCADE [Suspect]
     Active Substance: BORTEZOMIB
     Dosage: C3D1 (2 .25 MG)
     Route: 058
     Dates: start: 20160223
  19. ACYCLOVIR. [Concomitant]
     Active Substance: ACYCLOVIR
     Dosage: 800 MG (400 MG, 2 IN 1 D)
     Route: 048
     Dates: start: 20151201
  20. BENDROFLUMETHIAZIDE [Concomitant]
     Active Substance: BENDROFLUMETHIAZIDE
     Indication: HYPERTENSION
     Dosage: 5 MG, 1 D
     Route: 048
     Dates: start: 201512
  21. DALTEPARIN SODIUM [Concomitant]
     Active Substance: DALTEPARIN SODIUM
     Dosage: 5000 IU, 1 D
     Route: 058
     Dates: start: 20160101, end: 20160104
  22. ACETAMINOPHEN. [Concomitant]
     Active Substance: ACETAMINOPHEN
     Indication: SEPSIS
     Dosage: 1 GM, UNK
     Route: 042
     Dates: start: 20160307, end: 20160307
  23. ACETAMINOPHEN. [Concomitant]
     Active Substance: ACETAMINOPHEN
     Indication: ARTHRALGIA
     Dosage: 1 GM, 1 AS REQUIRED
     Route: 048
     Dates: start: 20160101
  24. TAZOCIN (PIPERACILLIN SODIUM (+) TAZOBACTAM SODIUM) [Concomitant]
     Active Substance: PIPERACILLIN SODIUM\TAZOBACTAM SODIUM
     Indication: SEPSIS
     Dosage: UNKNOWN (4 .5 GM)
     Route: 042
     Dates: start: 20160316, end: 20160316
  25. DEXAMETHASONE. [Suspect]
     Active Substance: DEXAMETHASONE
     Indication: PLASMA CELL MYELOMA
     Dosage: ON DAY 1 (20 MG)
     Route: 048
     Dates: start: 20151201, end: 20151201
  26. MELPHALAN. [Suspect]
     Active Substance: MELPHALAN
     Dosage: ON DAYS 1-4 (8 MG)
     Route: 048
     Dates: start: 20160223, end: 20160226
  27. VELCADE [Suspect]
     Active Substance: BORTEZOMIB
     Indication: PLASMA CELL MYELOMA
     Dosage: ON DAYS 1,4,11,22,25,29,32 (2.25 MG)
     Route: 058
     Dates: start: 20151201, end: 20160301
  28. VELCADE [Suspect]
     Active Substance: BORTEZOMIB
     Dosage: ON DAYS 1,4,8,11,22,25,29,32 (2.25 MG)
     Route: 058
     Dates: start: 20160405, end: 20161129
  29. VELCADE [Suspect]
     Active Substance: BORTEZOMIB
     Dosage: C1D22 (2 .25 MG)
     Route: 058
     Dates: start: 20151222
  30. PREDNISONE. [Concomitant]
     Active Substance: PREDNISONE
     Dosage: UNKNOWN (105 MG)
     Route: 048
     Dates: start: 20151202, end: 20151204
  31. ACETAMINOPHEN, DIHYDROCODEINE BITARTRATE [Concomitant]
     Indication: ARTHRALGIA
     Dosage: UNKNOWN, 4 IN 1 D
     Route: 048
     Dates: start: 2015
  32. FUROSEMIDE. [Concomitant]
     Active Substance: FUROSEMIDE
     Indication: OEDEMA PERIPHERAL
     Dosage: 40 MG, 1 D
     Route: 048
     Dates: start: 20160202
  33. LACTULOSE. [Concomitant]
     Active Substance: LACTULOSE
     Indication: CONSTIPATION
     Dosage: 15 MG, 2 IN 1 D
     Route: 048
     Dates: start: 20150225
  34. MONOCLONAL ANTIBODY (UNSPECIFIED) [Suspect]
     Active Substance: UNSPECIFIED INGREDIENT
     Indication: PLASMA CELL MYELOMA
     Dosage: ON DAYS 1,8,15,22,29,26 (1220 MG)
     Route: 042
     Dates: start: 20151201, end: 20151229
  35. DOXAZOSIN [Concomitant]
     Active Substance: DOXAZOSIN\DOXAZOSIN MESYLATE
     Dosage: 1 MG, QD (1 MG, (1 IN 1 D))
     Route: 048
  36. LANSOPRAZOLE. [Concomitant]
     Active Substance: LANSOPRAZOLE
     Indication: PROPHYLAXIS AGAINST GASTROINTESTINAL ULCER
     Dosage: 30-60MG (30 MG, 1 D)
     Route: 048
     Dates: start: 2005
  37. VELCADE [Suspect]
     Active Substance: BORTEZOMIB
     Dosage: CYLCE 2 DAY1 (2 .25 MG)
     Route: 058
     Dates: start: 20160113
  38. PREDNISONE. [Concomitant]
     Active Substance: PREDNISONE
     Dosage: UNKNOWN (105 MG)
     Route: 048
     Dates: start: 20160224, end: 20160226
  39. MK-9355 [Concomitant]
     Active Substance: UNSPECIFIED INGREDIENT
     Indication: GOUT
     Dosage: UNKNOWN (30MG,1D)
     Route: 048
     Dates: start: 20151201
  40. AMOXICILLIN (+) CLAVULANATE POTASSIUM [Concomitant]
     Active Substance: AMOXICILLIN\CLAVULANATE POTASSIUM
     Indication: INFECTION PROPHYLAXIS
     Dosage: UNKNOWN (625 MG,3 IN 1 D)
     Route: 048
     Dates: start: 20151228, end: 20151231
  41. PERINDOPRIL [Concomitant]
     Active Substance: PERINDOPRIL
     Indication: HYPERTENSION
     Dosage: 8 MG, 1 D
     Route: 048
     Dates: end: 20160108
  42. MELPHALAN. [Suspect]
     Active Substance: MELPHALAN
     Indication: PLASMA CELL MYELOMA
     Dosage: ON DAYS 1-4 (16 MG)
     Route: 048
     Dates: start: 20151201, end: 20151204
  43. MELPHALAN. [Suspect]
     Active Substance: MELPHALAN
     Dosage: ON DAYS 1-4 (12 MG)
     Route: 048
     Dates: start: 20160113, end: 20160116
  44. MONOCLONAL ANTIBODY (UNSPECIFIED) [Suspect]
     Active Substance: UNSPECIFIED INGREDIENT
     Dosage: CYCLE 3, DAY 1 (1220 MG)
     Route: 042
  45. MONOCLONAL ANTIBODY (UNSPECIFIED) [Suspect]
     Active Substance: UNSPECIFIED INGREDIENT
     Dosage: UNSPECIFIED, 1200MG
     Route: 042
  46. VELCADE [Suspect]
     Active Substance: BORTEZOMIB
     Dosage: C1D11 (2 .25 MG)
     Route: 058
     Dates: start: 20151211
  47. VELCADE [Suspect]
     Active Substance: BORTEZOMIB
     Dosage: C3D2 (2 .25 MG)
     Route: 058
     Dates: start: 20160301
  48. VELCADE [Suspect]
     Active Substance: BORTEZOMIB
     Dosage: C1D32 (2 .25 MG)
     Route: 058
     Dates: start: 20160101
  49. AMOXICILLIN (+) CLAVULANATE POTASSIUM [Concomitant]
     Active Substance: AMOXICILLIN\CLAVULANATE POTASSIUM
     Indication: URINARY TRACT INFECTION
  50. FERROUS FUMARATE [Concomitant]
     Active Substance: FERROUS FUMARATE
     Indication: IRON DEFICIENCY
     Dosage: 210 MG, 2 IN 1 D
     Route: 048
     Dates: start: 2010
  51. ACETAMINOPHEN. [Concomitant]
     Active Substance: ACETAMINOPHEN
     Dosage: 1 GM, 4 IN 1 D
     Route: 048
     Dates: start: 2005, end: 20160101
  52. SEPTRIN [Concomitant]
     Active Substance: SULFAMETHOXAZOLE\TRIMETHOPRIM
     Indication: INFECTION PROPHYLAXIS
     Dosage: 480 MG, 1 D
     Route: 048
     Dates: start: 201602
  53. TAZOCIN (PIPERACILLIN SODIUM (+) TAZOBACTAM SODIUM) [Concomitant]
     Active Substance: PIPERACILLIN SODIUM\TAZOBACTAM SODIUM
     Indication: URINARY TRACT INFECTION
     Dosage: 4.5 GM, 3 IN 1 D
     Route: 042
     Dates: start: 20160308, end: 20160315
  54. MONOCLONAL ANTIBODY (UNSPECIFIED) [Suspect]
     Active Substance: UNSPECIFIED INGREDIENT
     Dosage: ON DAYS 1,8,15,22,29,36 (1200 MG)
     Route: 042
     Dates: start: 20151201, end: 20151229
  55. ACYCLOVIR. [Concomitant]
     Active Substance: ACYCLOVIR
     Indication: ANTIVIRAL PROPHYLAXIS
     Dosage: 400 MG, QD (400 MG , 1 D)
     Route: 048
     Dates: start: 20151201
  56. DOXAZOSIN [Concomitant]
     Active Substance: DOXAZOSIN\DOXAZOSIN MESYLATE
     Indication: HYPERTENSION
     Dosage: (UNKNOWN) 1 G, 1 D
     Route: 048
  57. SODIUM CHLORIDE. [Concomitant]
     Active Substance: SODIUM CHLORIDE
     Dosage: UNKNOWN (1000 ML)
     Route: 042
     Dates: start: 20160101, end: 20160102
  58. TAZOCIN (PIPERACILLIN SODIUM (+) TAZOBACTAM SODIUM) [Concomitant]
     Active Substance: PIPERACILLIN SODIUM\TAZOBACTAM SODIUM
     Dosage: UNKNOWN (4 .5 GM)
     Route: 042
     Dates: start: 20160307, end: 20160307

REACTIONS (7)
  - Arthralgia [Unknown]
  - Anaemia [Recovered/Resolved]
  - Sepsis [Unknown]
  - Oedema peripheral [Unknown]
  - Acute kidney injury [Recovered/Resolved]
  - Eye pruritus [Unknown]
  - Pneumonia [Unknown]

NARRATIVE: CASE EVENT DATE: 20151201
